FAERS Safety Report 6385660-0 (Version None)
Quarter: 2009Q4

REPORT INFORMATION
  Report Type: 
  Country: None (occurrence: None)
  Receive Date: 20091002
  Receipt Date: 20081020
  Transmission Date: 20100525
  Serious: No
  Sender: FDA-Public Use
  Company Number: US-ASTRAZENECA-2008UW23155

PATIENT
  Sex: Female

DRUGS (4)
  1. ARIMIDEX [Suspect]
     Indication: BREAST CANCER
     Route: 048
     Dates: start: 20081006
  2. ATENOLOL [Concomitant]
  3. LISINOPRIL [Concomitant]
  4. ATIVAN [Concomitant]

REACTIONS (7)
  - APHONIA [None]
  - BALANCE DISORDER [None]
  - DIZZINESS [None]
  - HOT FLUSH [None]
  - NAUSEA [None]
  - SKIN BURNING SENSATION [None]
  - TREMOR [None]
